FAERS Safety Report 24060715 (Version 1)
Quarter: 2024Q3

REPORT INFORMATION
  Report Type: Spontaneous
  Country: US (occurrence: None)
  Receive Date: 20240705
  Receipt Date: 20240705
  Transmission Date: 20241017
  Serious: Yes (Hospitalization)
  Sender: Public
  Company Number: None

PATIENT
  Age: 28 Year
  Sex: Female

DRUGS (2)
  1. ENVARSUS XR [Suspect]
     Active Substance: TACROLIMUS
     Indication: Renal transplant
     Dosage: 2 MG DAILY ORAL?
     Route: 048
     Dates: start: 20231207
  2. ENVARSUS XR [Suspect]
     Active Substance: TACROLIMUS
     Indication: Renal transplant
     Dosage: 4 MG/MG  DAILY ORAL
     Route: 048
     Dates: start: 20231207

REACTIONS (2)
  - Kidney transplant rejection [None]
  - Renal failure [None]

NARRATIVE: CASE EVENT DATE: 20240626
